FAERS Safety Report 8438973-2 (Version None)
Quarter: 2012Q2

REPORT INFORMATION
  Report Type: 
  Country: None (occurrence: None)
  Receive Date: 20120615
  Receipt Date: 20120606
  Transmission Date: 20120825
  Serious: Yes (Hospitalization)
  Sender: FDA-Public Use
  Company Number: JP-JNJFOC-20120605885

PATIENT
  Age: 85 Year
  Sex: Female

DRUGS (3)
  1. XARELTO [Suspect]
     Indication: CEREBROVASCULAR ACCIDENT PROPHYLAXIS
     Route: 048
     Dates: start: 20120514, end: 20120606
  2. ASPENON [Suspect]
     Indication: ATRIAL FIBRILLATION
     Route: 048
  3. LANSOPRAZOLE [Concomitant]

REACTIONS (2)
  - LIVER DISORDER [None]
  - RENAL DISORDER [None]
